FAERS Safety Report 4760588-8 (Version None)
Quarter: 2005Q3

REPORT INFORMATION
  Report Type: 
  Country: None (occurrence: None)
  Receive Date: 20050826
  Receipt Date: 20041022
  Transmission Date: 20060218
  Serious: Yes (Death)
  Sender: FDA-Public Use
  Company Number: USA-2004-0016875

PATIENT
  Age: 44 Year
  Sex: Male
  Weight: 85.3 kg

DRUGS (12)
  1. OXYCONTIN [Suspect]
     Indication: PAIN
     Dosage: 60 MG TID
  2. ALPRAZOLAM [Suspect]
  3. DIAZEPAM [Suspect]
  4. AMITRIPTYLINE HCL [Suspect]
  5. CYCLOBENZAPRINE HCL [Suspect]
  6. TRAMADOL HCL [Suspect]
  7. AMBIEN [Concomitant]
  8. METHOCARBAMOL [Concomitant]
  9. PREVACID [Concomitant]
  10. NAPROSYN [Concomitant]
  11. NEURONTIN [Concomitant]
  12. TEGRETOL [Concomitant]

REACTIONS (4)
  - ACCIDENTAL OVERDOSE [None]
  - CARDIAC ARREST [None]
  - MULTIPLE DRUG OVERDOSE [None]
  - RESPIRATORY ARREST [None]
